FAERS Safety Report 5385221-6 (Version None)
Quarter: 2007Q3

REPORT INFORMATION
  Report Type: 
  Country: None (occurrence: None)
  Receive Date: 20070709
  Receipt Date: 20070628
  Transmission Date: 20080115
  Serious: Yes (Other)
  Sender: FDA-Public Use
  Company Number: CIP07001246

PATIENT
  Age: 45 Year
  Sex: Male

DRUGS (1)
  1. ACTONEL [Suspect]
     Indication: OSTEOPOROSIS
     Dosage: 5MG DAILY, ORAL
     Route: 048
     Dates: start: 20061203, end: 20061217

REACTIONS (2)
  - HAEMATEMESIS [None]
  - PAIN [None]
